FAERS Safety Report 6755950-8 (Version None)
Quarter: 2010Q2

REPORT INFORMATION
  Report Type: 
  Country: None (occurrence: None)
  Receive Date: 20100604
  Receipt Date: 20100521
  Transmission Date: 20101027
  Serious: Yes (Hospitalization, Other)
  Sender: FDA-Public Use
  Company Number: PHHY2010DE13223

PATIENT
  Sex: Male
  Weight: 78 kg

DRUGS (12)
  1. ALISKIREN ALI+ [Suspect]
     Indication: HYPERTENSION
     Dosage: 150 MG/DAY
     Dates: start: 20090211, end: 20091208
  2. HYDROCHLOROTHIAZIDE [Suspect]
     Indication: HYPERTENSION
     Dosage: 25 MG PER DAY
     Route: 048
     Dates: start: 20091208
  3. PULMICORT [Suspect]
     Indication: CHRONIC OBSTRUCTIVE PULMONARY DISEASE
     Dosage: 12 MCG PER DAY
     Route: 048
     Dates: start: 20091208
  4. FORMOTEROL FUMARATE [Suspect]
     Indication: CHRONIC OBSTRUCTIVE PULMONARY DISEASE
     Dosage: 400 MCG PER DAY
     Route: 048
     Dates: start: 20091208
  5. ANGIOTENSIN CONVERTING ENZYME BLOCKERS [Concomitant]
  6. ALPHA RECEPTOR BLOCKER [Concomitant]
  7. DIURETICS [Concomitant]
  8. PLATELET AGGREGATION INHIBITORS [Concomitant]
  9. ACETYLCYSTEINE [Concomitant]
     Indication: CHRONIC OBSTRUCTIVE PULMONARY DISEASE
     Dosage: 600 MG PER DAY
     Route: 048
     Dates: start: 20091208, end: 20091217
  10. ASPIRIN [Concomitant]
     Indication: CORONARY ARTERY DISEASE
     Dosage: 100 MG PER DAY
     Route: 048
     Dates: start: 20091208
  11. CANDESARTAN CILEXETIL [Concomitant]
     Indication: HYPERTENSION
     Dosage: 16 MG PER DAY
     Route: 048
     Dates: start: 20091208
  12. LERCANIDIPINE [Concomitant]
     Indication: HYPERTENSION
     Dosage: 10 MG PER DAY
     Route: 048
     Dates: start: 20091208

REACTIONS (4)
  - ANGINA PECTORIS [None]
  - AORTIC VALVE INCOMPETENCE [None]
  - AORTIC VALVE REPLACEMENT [None]
  - BLOOD PRESSURE SYSTOLIC INCREASED [None]
